FAERS Safety Report 15802141 (Version 4)
Quarter: 2021Q2

REPORT INFORMATION
  Report Type: Report from Study
  Country: US (occurrence: US)
  Receive Date: 20190109
  Receipt Date: 20210522
  Transmission Date: 20210716
  Serious: Yes (Other)
  Sender: FDA-Public Use
  Company Number: PHEH2018US021245

PATIENT
  Age: 60 Year
  Sex: Male
  Weight: 90.71 kg

DRUGS (7)
  1. COSENTYX [Suspect]
     Active Substance: SECUKINUMAB
     Indication: PSORIASIS
     Dosage: 300 MG, QMO
     Route: 065
     Dates: start: 20180104, end: 20180805
  2. CEPHALEXIN. [Concomitant]
     Active Substance: CEPHALEXIN
     Indication: INFECTION
     Dosage: UNK
     Route: 065
  3. COSENTYX [Suspect]
     Active Substance: SECUKINUMAB
     Dosage: 150 MG, Q2W
     Route: 058
  4. COSENTYX [Suspect]
     Active Substance: SECUKINUMAB
     Dosage: 150 MG, BIW
     Route: 065
     Dates: start: 20180805, end: 20191017
  5. HUMIRA [Concomitant]
     Active Substance: ADALIMUMAB
     Indication: PSORIASIS
     Dosage: 40 MG, Q2W
     Route: 065
     Dates: start: 20170327, end: 20180104
  6. VITAMIN D [Concomitant]
     Active Substance: VITAMIN D NOS
     Indication: SUPPLEMENTATION THERAPY
     Dosage: 5000 IU, QW
     Route: 065
     Dates: start: 20180805
  7. RIFAMPIN. [Concomitant]
     Active Substance: RIFAMPIN
     Indication: INFECTION
     Dosage: UNK
     Route: 065

REACTIONS (11)
  - Influenza like illness [Recovered/Resolved]
  - Abscess [Unknown]
  - Urinary tract infection [Recovered/Resolved]
  - Prostate cancer [Recovered/Resolved]
  - Squamous cell carcinoma of skin [Recovered/Resolved]
  - Neoplasm [Unknown]
  - Road traffic accident [Unknown]
  - Rib fracture [Unknown]
  - Cellulitis [Unknown]
  - Benign prostatic hyperplasia [Recovered/Resolved]
  - Inappropriate schedule of product administration [Unknown]

NARRATIVE: CASE EVENT DATE: 20180404
